FAERS Safety Report 4464368-2 (Version None)
Quarter: 2004Q4

REPORT INFORMATION
  Report Type: 
  Country: None (occurrence: None)
  Receive Date: 20040929
  Receipt Date: 20040914
  Transmission Date: 20050328
  Serious: Yes (Death, Other)
  Sender: FDA-Public Use
  Company Number: USA040977678

PATIENT
  Age: 24 Year
  Sex: Female

DRUGS (3)
  1. SYMBYAX [Suspect]
     Indication: BIPOLAR I DISORDER
  2. HYDROCODONE [Concomitant]
  3. MORPHINE [Concomitant]

REACTIONS (1)
  - NO ADVERSE DRUG EFFECT [None]
